FAERS Safety Report 10904923 (Version 1)
Quarter: 2015Q1

REPORT INFORMATION
  Report Type: Spontaneous
  Country: IL (occurrence: IL)
  Receive Date: 20150311
  Receipt Date: 20150311
  Transmission Date: 20150721
  Serious: Yes (Hospitalization)
  Sender: FDA-Public Use
  Company Number: IL-JNJFOC-20150303253

PATIENT
  Age: 20 Year
  Sex: Female

DRUGS (1)
  1. REMICADE [Suspect]
     Active Substance: INFLIXIMAB
     Indication: TAKAYASU^S ARTERITIS
     Dosage: TREATED FOR A YEAR AND A HALF
     Route: 042

REACTIONS (7)
  - Troponin increased [Unknown]
  - Infusion related reaction [Unknown]
  - C-reactive protein increased [Unknown]
  - Cardiac disorder [Unknown]
  - Pulmonary oedema [Unknown]
  - Product use issue [Unknown]
  - Blood pressure decreased [Recovered/Resolved]
